FAERS Safety Report 24214112 (Version 1)
Quarter: 2024Q3

REPORT INFORMATION
  Report Type: Spontaneous
  Country: IT (occurrence: IT)
  Receive Date: 20240815
  Receipt Date: 20240815
  Transmission Date: 20241017
  Serious: Yes (Death, Other)
  Sender: ACERUS PHARMACEUTICALS
  Company Number: IT-CIPHER-2024-IT-000003

PATIENT
  Age: 61 Year

DRUGS (3)
  1. TESTOSTERONE [Suspect]
     Active Substance: TESTOSTERONE
     Indication: Virilism
     Dates: start: 202105, end: 202204
  2. CISPLATIN [Suspect]
     Active Substance: CISPLATIN
     Indication: Chemotherapy
     Dosage: 50MG/M^2
     Route: 042
  3. ANASTROZOLE [Suspect]
     Active Substance: ANASTROZOLE
     Indication: Chemotherapy

REACTIONS (7)
  - Leukopenia [Fatal]
  - Product use in unapproved indication [Fatal]
  - Breast cancer [Fatal]
  - Cervix carcinoma [Fatal]
  - Thrombocytopenia [Unknown]
  - Diarrhoea [Fatal]
  - Hepatic failure [Fatal]
